FAERS Safety Report 8537106-1 (Version None)
Quarter: 2012Q3

REPORT INFORMATION
  Report Type: 
  Country: None (occurrence: None)
  Receive Date: 20120725
  Receipt Date: 20120719
  Transmission Date: 20120928
  Serious: Yes (Hospitalization)
  Sender: FDA-Public Use
  Company Number: US-CELGENEUS-163-21880-12072130

PATIENT
  Sex: Female
  Weight: 57.204 kg

DRUGS (9)
  1. CALCIUM [Concomitant]
     Route: 065
  2. LORAZEPAM [Concomitant]
     Route: 065
  3. TRAMADOL HYDROCHLORIDE [Concomitant]
     Indication: PAIN
     Route: 065
  4. DECADRON [Concomitant]
     Route: 065
  5. COREG [Concomitant]
     Route: 065
  6. VITAMIN TAB [Concomitant]
     Route: 065
  7. VELCADE [Concomitant]
     Route: 065
  8. REVLIMID [Suspect]
     Indication: MULTIPLE MYELOMA
     Dosage: 25 MILLIGRAM
     Route: 048
     Dates: start: 20111001
  9. FISH OIL [Concomitant]
     Route: 065

REACTIONS (2)
  - GASTROINTESTINAL DISORDER [None]
  - MONOCLONAL IMMUNOGLOBULIN PRESENT [None]
